FAERS Safety Report 6737824-1 (Version None)
Quarter: 2010Q2

REPORT INFORMATION
  Report Type: 
  Country: None (occurrence: None)
  Receive Date: 20100524
  Receipt Date: 20100513
  Transmission Date: 20101027
  Serious: Yes (Hospitalization)
  Sender: FDA-Public Use
  Company Number: US-JNJFOC-20100300338

PATIENT
  Sex: Male
  Weight: 63.4 kg

DRUGS (28)
  1. REMICADE [Suspect]
     Indication: CROHN'S DISEASE
     Dosage: RECEIVED 1ST 3 INFUSIONS AT WEEKS 0, 2 AND 6; RECEIVED A TOTAL OF 4 INFUSIONS
     Route: 042
  2. REMICADE [Suspect]
     Route: 042
  3. REMICADE [Suspect]
     Route: 042
  4. REMICADE [Suspect]
     Dosage: RECEIVED 1ST 3 INFUSIONS AT WEEKS 0, 2 AND 6; RECEIVED A TOTAL OF 4 INFUSIONS
     Route: 042
  5. REMICADE [Suspect]
     Route: 042
  6. PREDNISONE TAB [Concomitant]
     Indication: PREMEDICATION
     Route: 048
  7. PERCOCET [Concomitant]
     Indication: PAIN
     Route: 048
  8. ACETAMINOPHEN [Concomitant]
     Indication: PAIN
     Route: 048
  9. DOCUSATE [Concomitant]
     Route: 048
  10. MIDAZOLAM HCL [Concomitant]
  11. MIDAZOLAM HCL [Concomitant]
  12. METRONIDAZOLE [Concomitant]
     Route: 048
  13. PROCHLORPERAZINE [Concomitant]
     Indication: ANTIEMETIC SUPPORTIVE CARE
     Route: 042
  14. ONDANSETRON [Concomitant]
     Route: 042
  15. ONDANSETRON [Concomitant]
     Route: 042
  16. ONDANSETRON [Concomitant]
     Route: 042
  17. MORPHINE [Concomitant]
     Indication: PAIN
     Route: 042
  18. ZOSYN [Concomitant]
     Route: 042
  19. SENNA [Concomitant]
     Route: 048
  20. SIMETHICONE [Concomitant]
     Indication: FLATULENCE
     Route: 048
  21. CALCIUM GLUCONATE [Concomitant]
     Route: 042
  22. IOHEXOL [Concomitant]
     Route: 042
  23. DIATRIZOATE MEGLUMINE [Concomitant]
     Route: 048
  24. POTASSIUM CHLORIDE [Concomitant]
     Route: 042
  25. CIPROFLOXACIN [Concomitant]
     Route: 048
  26. VICODIN [Concomitant]
     Route: 048
  27. DOCUSATE [Concomitant]
     Route: 048
  28. NYSTATIN [Concomitant]
     Route: 048

REACTIONS (1)
  - DISSEMINATED TUBERCULOSIS [None]
